FAERS Safety Report 9515137 (Version 3)
Quarter: 2013Q4

REPORT INFORMATION
  Report Type: Spontaneous
  Country: JP (occurrence: JP)
  Receive Date: 20130911
  Receipt Date: 20131017
  Transmission Date: 20140711
  Serious: Yes (Death, Life-Threatening, Hospitalization, Other)
  Sender: FDA-Public Use
  Company Number: JP-BAYER-2013-108469

PATIENT
  Age: 78 Year
  Sex: Male
  Weight: 61 kg

DRUGS (3)
  1. NEXAVAR [Suspect]
     Indication: HEPATOCELLULAR CARCINOMA
     Dosage: 400 MG, QD
     Route: 048
     Dates: start: 20130730, end: 20130901
  2. NEXAVAR [Suspect]
     Indication: HEPATOCELLULAR CARCINOMA
     Dosage: 200 MG/DAY
     Route: 048
     Dates: start: 20130902, end: 20130904
  3. MICARDIS [Concomitant]
     Indication: HYPERTENSION
     Dosage: DAILY DOSE 20 MG
     Route: 048
     Dates: end: 201309

REACTIONS (5)
  - Interstitial lung disease [Fatal]
  - Pulmonary embolism [Fatal]
  - Atrioventricular block complete [Recovered/Resolved]
  - Erythema multiforme [Recovering/Resolving]
  - Syncope [Recovered/Resolved]
